FAERS Safety Report 11858290 (Version 2)
Quarter: 2015Q4

REPORT INFORMATION
  Report Type: Spontaneous
  Country: US (occurrence: US)
  Receive Date: 20151222
  Receipt Date: 20151230
  Transmission Date: 20160305
  Serious: Yes (Hospitalization, Other)
  Sender: FDA-Public Use
  Company Number: US-GLAXOSMITHKLINE-US2015GSK179981

PATIENT
  Age: 55 Year
  Sex: Female

DRUGS (2)
  1. FLOLAN [Suspect]
     Active Substance: EPOPROSTENOL SODIUM
     Indication: PULMONARY ARTERIAL HYPERTENSION
     Dosage: 18 NG/KG/MIN, CONCENTRATION 30,000 NG/ML
     Dates: start: 20150729
  2. WARFARIN [Concomitant]
     Active Substance: WARFARIN

REACTIONS (3)
  - Cough [Recovering/Resolving]
  - Hospitalisation [Unknown]
  - Productive cough [Recovering/Resolving]

NARRATIVE: CASE EVENT DATE: 2015
